FAERS Safety Report 6146938-9 (Version None)
Quarter: 2009Q2

REPORT INFORMATION
  Report Type: 
  Country: None (occurrence: None)
  Receive Date: 20090407
  Receipt Date: 20090401
  Transmission Date: 20091009
  Serious: Yes (Death)
  Sender: FDA-Public Use
  Company Number: GB-SANOFI-SYNTHELABO-A01200903449

PATIENT
  Age: 66 Year
  Sex: Female

DRUGS (10)
  1. CIPROFLOXACIN [Concomitant]
     Dates: start: 20090221, end: 20090301
  2. HALOPERIDOL [Concomitant]
     Dosage: UNK
     Route: 065
     Dates: start: 20090225, end: 20090301
  3. MORPHINE [Concomitant]
  4. CEFUROXIME [Concomitant]
  5. NEUPOGEN [Concomitant]
  6. XELODA [Suspect]
     Indication: COLORECTAL CANCER METASTATIC
     Route: 048
  7. AVASTIN [Suspect]
     Indication: METASTASES TO LUNG
     Dosage: UNK
     Route: 065
  8. AVASTIN [Suspect]
     Indication: METASTASES TO LIVER
     Dosage: UNK
     Route: 065
  9. OXALIPLATIN [Suspect]
     Indication: COLORECTAL CANCER METASTATIC
     Route: 042
  10. BUSCOPAN [Concomitant]

REACTIONS (4)
  - COLITIS [None]
  - COLITIS ISCHAEMIC [None]
  - DIARRHOEA [None]
  - MIGRAINE [None]
